FAERS Safety Report 4423583-4 (Version None)
Quarter: 2004Q3

REPORT INFORMATION
  Report Type: 
  Country: None (occurrence: None)
  Receive Date: 20040714
  Receipt Date: 20040106
  Transmission Date: 20050211
  Serious: Yes (Hospitalization)
  Sender: FDA-Public Use
  Company Number: 200320418US

PATIENT
  Age: 78 Year
  Sex: Male

DRUGS (3)
  1. TAXOTERE [Suspect]
     Indication: NON-SMALL CELL LUNG CANCER
     Dosage: 54 MG ONCE
     Dates: start: 20031125, end: 20031125
  2. ANZEMET [Concomitant]
  3. DECADRON [Concomitant]

REACTIONS (6)
  - BLOOD PRESSURE INCREASED [None]
  - COMA [None]
  - CYANOSIS [None]
  - PAINFUL RESPIRATION [None]
  - SWELLING FACE [None]
  - SYNCOPE [None]
